FAERS Safety Report 11883229 (Version 4)
Quarter: 2016Q4

REPORT INFORMATION
  Report Type: Report from Study
  Country: DE (occurrence: DE)
  Receive Date: 20151231
  Receipt Date: 20161127
  Transmission Date: 20170206
  Serious: Yes (Hospitalization)
  Sender: FDA-Public Use
  Company Number: PHHO2015DE019938

PATIENT
  Age: 68 Year
  Sex: Male
  Weight: 104.4 kg

DRUGS (4)
  1. CELLCEPT [Suspect]
     Active Substance: MYCOPHENOLATE MOFETIL\MYCOPHENOLATE MOFETIL HYDROCHLORIDE
     Indication: RENAL TRANSPLANT
     Dosage: 500 MG, BID (500 0 500 MG)
     Route: 065
     Dates: start: 20150902
  2. PREDNISON [Concomitant]
     Active Substance: PREDNISONE
     Indication: RENAL TRANSPLANT
     Dosage: 10 MG, UNK
     Route: 065
     Dates: start: 20150926
  3. NO TREATMENT RECEIVED [Suspect]
     Active Substance: UNSPECIFIED INGREDIENT
     Indication: RENAL TRANSPLANT
     Dosage: NO TREATMENT
     Route: 065
  4. TACROLIMUS. [Suspect]
     Active Substance: TACROLIMUS
     Indication: RENAL TRANSPLANT
     Dosage: 11.5 MG, QD (6.0-0-5.5)
     Route: 065
     Dates: start: 20150902

REACTIONS (3)
  - Lymphocele [Recovered/Resolved]
  - Gastroenteritis norovirus [Recovered/Resolved]
  - Lymphocele [Recovered/Resolved]

NARRATIVE: CASE EVENT DATE: 20151015
